FAERS Safety Report 8799890 (Version 2)
Quarter: 2012Q4

REPORT INFORMATION
  Report Type: 
  Country: US (occurrence: US)
  Receive Date: 20120919
  Receipt Date: 20121025
  Transmission Date: 20130627
  Serious: Yes (Life-Threatening, Other)
  Sender: FDA-Public Use
  Company Number: US-009507513-1209USA005891

PATIENT
  Age: 18 None
  Sex: Male
  Weight: 125.62 kg

DRUGS (4)
  1. SAPHRIS [Suspect]
     Indication: AUTISM
     Dosage: 5 mg, UNK
     Route: 048
     Dates: start: 20120725
  2. SAPHRIS [Suspect]
     Indication: MOOD SWINGS
     Dosage: 10 mg, UNK
     Route: 048
     Dates: start: 20120806, end: 20120912
  3. SAPHRIS [Suspect]
     Indication: ABNORMAL BEHAVIOUR
     Dosage: 5 mg, UNK
     Route: 048
     Dates: start: 20120912, end: 20121015
  4. SAPHRIS [Suspect]
     Indication: AGGRESSION

REACTIONS (4)
  - Convulsion [Unknown]
  - Incorrect route of drug administration [Unknown]
  - Abnormal behaviour [Unknown]
  - Mood swings [Unknown]
